FAERS Safety Report 12227030 (Version 1)
Quarter: 2016Q1

REPORT INFORMATION
  Report Type: Spontaneous
  Country: IN (occurrence: IN)
  Receive Date: 20160331
  Receipt Date: 20160331
  Transmission Date: 20160526
  Serious: Yes (Other)
  Sender: FDA-Public Use
  Company Number: IN-BAUSCH-BL-2016-007309

PATIENT
  Age: 38 Year
  Sex: Male

DRUGS (1)
  1. PREDNISOLONE. [Suspect]
     Active Substance: PREDNISOLONE
     Indication: SECONDARY ADRENOCORTICAL INSUFFICIENCY
     Dosage: VERY SMALL DOSE
     Route: 048

REACTIONS (1)
  - Osteonecrosis [Recovering/Resolving]
